FAERS Safety Report 11446958 (Version 1)
Quarter: 2015Q3

REPORT INFORMATION
  Report Type: Spontaneous
  Country: US (occurrence: US)
  Receive Date: 20150831
  Receipt Date: 20150831
  Transmission Date: 20151125
  Serious: No
  Sender: FDA-Public Use
  Company Number: US-ELI_LILLY_AND_COMPANY-US200812002425

PATIENT
  Sex: Female

DRUGS (3)
  1. ARMOUR THYROID [Concomitant]
     Active Substance: THYROID, PORCINE\THYROID, UNSPECIFIED
     Indication: HYPOTHYROIDISM
  2. LYRICA [Concomitant]
     Active Substance: PREGABALIN
     Dosage: 50 MG, 2/D
     Dates: start: 20080908, end: 20090120
  3. CYMBALTA [Suspect]
     Active Substance: DULOXETINE HYDROCHLORIDE
     Indication: NEURALGIA
     Dosage: 60 MG, UNK
     Route: 048
     Dates: start: 20081008, end: 20081203

REACTIONS (3)
  - Eye haemorrhage [Not Recovered/Not Resolved]
  - Skin lesion [Unknown]
  - Menstrual disorder [Recovered/Resolved]

NARRATIVE: CASE EVENT DATE: 200811
